FAERS Safety Report 6274400-1 (Version None)
Quarter: 2009Q3

REPORT INFORMATION
  Report Type: 
  Country: None (occurrence: None)
  Receive Date: 20090720
  Receipt Date: 20090709
  Transmission Date: 20100115
  Serious: Yes (Hospitalization)
  Sender: FDA-Public Use
  Company Number: FR-GENENTECH-286863

PATIENT
  Sex: Female

DRUGS (3)
  1. TRASTUZUMAB [Suspect]
     Indication: BREAST CANCER
     Dosage: 8 MG/KG, Q3W
     Route: 042
     Dates: start: 20090618, end: 20090709
  2. AVASTIN [Suspect]
     Indication: BREAST CANCER
     Dosage: 15 MG/KG, Q3W
     Route: 042
     Dates: start: 20090618, end: 20090709
  3. DOCETAXEL [Suspect]
     Indication: BREAST CANCER
     Dosage: 100 MG/M2, Q3W
     Route: 042
     Dates: start: 20090618, end: 20090709

REACTIONS (1)
  - LUNG DISORDER [None]
